FAERS Safety Report 16791570 (Version 3)
Quarter: 2022Q1

REPORT INFORMATION
  Report Type: Report from Study
  Country: FR (occurrence: FR)
  Receive Date: 20190910
  Receipt Date: 20220130
  Transmission Date: 20220423
  Serious: Yes (Death, Other)
  Sender: FDA-Public Use
  Company Number: FR-JAZZ-2019-FR-012516

PATIENT

DRUGS (2)
  1. DEFITELIO [Suspect]
     Active Substance: DEFIBROTIDE SODIUM
     Indication: Venoocclusive liver disease
     Dosage: 24 MG/KG/DAY
     Route: 042
     Dates: start: 20190109, end: 20190128
  2. URSODIOL [Suspect]
     Active Substance: URSODIOL
     Indication: Venoocclusive liver disease

REACTIONS (6)
  - Multiple organ dysfunction syndrome [Fatal]
  - Viral haemorrhagic cystitis [Recovered/Resolved]
  - Bronchopulmonary aspergillosis [Unknown]
  - Haematemesis [Recovered/Resolved]
  - Haemorrhage [Recovered/Resolved]
  - Off label use [Unknown]

NARRATIVE: CASE EVENT DATE: 20190109
